FAERS Safety Report 13639658 (Version 1)
Quarter: 2017Q2

REPORT INFORMATION
  Report Type: Spontaneous
  Country: US (occurrence: US)
  Receive Date: 20170609
  Receipt Date: 20170609
  Transmission Date: 20170830
  Serious: No
  Sender: FDA-Public Use
  Company Number: US-ROCHE-776639

PATIENT
  Sex: Male

DRUGS (1)
  1. KLONOPIN [Suspect]
     Active Substance: CLONAZEPAM
     Indication: CHOREA
     Dosage: INDICATION - TO REDUCE MOTOR MOVEMENTS RELATED TO CHOREA
     Route: 048

REACTIONS (7)
  - Musculoskeletal stiffness [Unknown]
  - Adverse event [Unknown]
  - Dizziness [Unknown]
  - Somnolence [Unknown]
  - Feeling abnormal [Unknown]
  - Fall [Unknown]
  - Condition aggravated [Unknown]
